FAERS Safety Report 9752933 (Version 1)
Quarter: 2013Q4

REPORT INFORMATION
  Report Type: Spontaneous
  Country: FR (occurrence: FR)
  Receive Date: 20131213
  Receipt Date: 20131213
  Transmission Date: 20140711
  Serious: Yes (Hospitalization)
  Sender: FDA-Public Use
  Company Number: FR-PFIZER INC-2013350205

PATIENT
  Age: 74 Year
  Sex: Male

DRUGS (14)
  1. VFEND [Suspect]
     Indication: OSTEOMYELITIS
     Dosage: 250 MG, 2X/DAY
     Route: 048
     Dates: start: 20131014, end: 20131017
  2. REPAGLINIDE [Interacting]
     Indication: TYPE 2 DIABETES MELLITUS
     Dosage: 2 MG, 2X/DAY
     Route: 048
     Dates: end: 20131017
  3. STAGID [Interacting]
     Indication: TYPE 2 DIABETES MELLITUS
     Dosage: 700 MG, 3X/DAY
     Route: 048
     Dates: end: 20131017
  4. OXYCONTIN [Concomitant]
     Indication: OSTEITIS
     Dosage: 30 MG, 2X/DAY
     Route: 048
     Dates: start: 201310
  5. EUPANTOL [Concomitant]
     Indication: GASTROOESOPHAGEAL REFLUX DISEASE
     Dosage: 40 MG, 1X/DAY
     Route: 048
  6. NEURONTIN [Concomitant]
     Indication: PAIN
     Dosage: 300 MG, 6XDAY
     Route: 048
  7. DOLIPRANE [Concomitant]
     Indication: PAIN
     Dosage: 1 G, 4X/DAY
     Route: 048
  8. CUBICIN [Concomitant]
     Indication: OSTEOMYELITIS
     Dosage: UNK
     Route: 042
     Dates: start: 201305, end: 20131016
  9. MERONEM [Concomitant]
     Indication: OSTEOMYELITIS
     Dosage: UNK
     Route: 042
     Dates: start: 20131002, end: 20131016
  10. ZINFORO [Concomitant]
     Indication: OSTEITIS
     Dosage: UNK
     Route: 042
     Dates: start: 20131014
  11. LERCANIDIPINE HYDROCHLORIDE [Concomitant]
     Indication: HYPERTENSION
  12. TRANSIPEG [Concomitant]
  13. KARDEGIC [Concomitant]
  14. IRON [Concomitant]
     Indication: SUPPLEMENTATION THERAPY
     Route: 048

REACTIONS (3)
  - Drug interaction [Recovered/Resolved]
  - Myoclonus [Recovered/Resolved]
  - Hypoglycaemia [Recovered/Resolved]
